FAERS Safety Report 9263948 (Version 2)
Quarter: 2013Q2

REPORT INFORMATION
  Report Type: Report from Study
  Country: CA (occurrence: CA)
  Receive Date: 20130430
  Receipt Date: 20130529
  Transmission Date: 20140414
  Serious: Yes (Hospitalization, Other)
  Sender: FDA-Public Use
  Company Number: CA-ABBOTT-13P-028-1082142-00

PATIENT
  Sex: Male
  Weight: 77.18 kg

DRUGS (5)
  1. HUMIRA [Suspect]
     Indication: CROHN^S DISEASE
     Route: 058
     Dates: start: 20120215
  2. HUMIRA [Suspect]
     Route: 058
  3. PREDNISONE [Suspect]
     Indication: HYPOPHAGIA
     Route: 048
     Dates: start: 2012, end: 2013
  4. PREDNISONE [Suspect]
     Indication: WEIGHT DECREASED
  5. OXYCODONE [Suspect]
     Indication: PRODUCT USED FOR UNKNOWN INDICATION

REACTIONS (7)
  - Hypophagia [Recovered/Resolved]
  - Asthenia [Recovered/Resolved]
  - Diarrhoea haemorrhagic [Recovered/Resolved]
  - Weight decreased [Recovered/Resolved]
  - Weight increased [Not Recovered/Not Resolved]
  - Adrenal insufficiency [Unknown]
  - Pancreatic cyst [Unknown]
